FAERS Safety Report 17049243 (Version 1)
Quarter: 2019Q4

REPORT INFORMATION
  Report Type: Spontaneous
  Country: US (occurrence: US)
  Receive Date: 20191119
  Receipt Date: 20191119
  Transmission Date: 20200122
  Serious: Yes (Life-Threatening, Hospitalization)
  Sender: FDA-Public Use
  Company Number: US-MYLANLABS-2019M1111182

PATIENT
  Age: 21 Year
  Sex: Female

DRUGS (6)
  1. ACETYLCYSTEINE. [Suspect]
     Active Substance: ACETYLCYSTEINE
     Dosage: 3 GRAM, Q4H
     Route: 042
  2. ACETYLCYSTEINE. [Suspect]
     Active Substance: ACETYLCYSTEINE
     Dosage: 6 G Q 16H
     Route: 042
  3. CALCIUM GLUCONATE. [Suspect]
     Active Substance: CALCIUM GLUCONATE
     Indication: CARDIOGENIC SHOCK
     Dosage: 10 MILLIGRAM, BID
     Route: 042
  4. ACETYLCYSTEINE. [Suspect]
     Active Substance: ACETYLCYSTEINE
     Indication: CARDIOGENIC SHOCK
     Dosage: 9 GRAM, QH
     Route: 042
  5. GLUCAGON. [Suspect]
     Active Substance: GLUCAGON
     Dosage: 2 MILLIGRAM, QH
     Route: 042
  6. GLUCAGON. [Suspect]
     Active Substance: GLUCAGON
     Indication: CARDIOGENIC SHOCK
     Dosage: 5 MG/STAT
     Route: 042

REACTIONS (1)
  - Drug ineffective [Unknown]
